FAERS Safety Report 19578694 (Version 1)
Quarter: 2021Q3

REPORT INFORMATION
  Report Type: Report from Study
  Country: US (occurrence: US)
  Receive Date: 20210719
  Receipt Date: 20210719
  Transmission Date: 20211014
  Serious: Yes (Disabling, Other)
  Sender: FDA-Public Use
  Company Number: US-JNJFOC-20210732501

PATIENT
  Age: 67 Year
  Sex: Female

DRUGS (7)
  1. SELEXIPAG [Suspect]
     Active Substance: SELEXIPAG
     Dosage: EVERY PM
     Route: 048
     Dates: start: 20180713
  2. MACITENTAN [Suspect]
     Active Substance: MACITENTAN
     Indication: PULMONARY ARTERIAL HYPERTENSION
     Route: 048
     Dates: start: 20171118
  3. ADEMPAS [Suspect]
     Active Substance: RIOCIGUAT
  4. ADEMPAS [Suspect]
     Active Substance: RIOCIGUAT
  5. SELEXIPAG [Suspect]
     Active Substance: SELEXIPAG
     Indication: PULMONARY ARTERIAL HYPERTENSION
     Dosage: EVERY AM
     Route: 048
     Dates: start: 20180713
  6. XARELTO [Concomitant]
     Active Substance: RIVAROXABAN
  7. SELEXIPAG [Suspect]
     Active Substance: SELEXIPAG
     Route: 048
     Dates: start: 20180713

REACTIONS (3)
  - Haematochezia [Unknown]
  - Dyspepsia [Not Recovered/Not Resolved]
  - Anaemia [Unknown]

NARRATIVE: CASE EVENT DATE: 202107
